FAERS Safety Report 7981409-6 (Version None)
Quarter: 2011Q4

REPORT INFORMATION
  Report Type: 
  Country: None (occurrence: None)
  Receive Date: 20111213
  Receipt Date: 20111128
  Transmission Date: 20120403
  Serious: Yes (Life-Threatening, Hospitalization, Other)
  Sender: FDA-Public Use
  Company Number: 2011P1013475

PATIENT
  Age: 80 Year
  Sex: Female

DRUGS (6)
  1. ACETAMINOPHEN [Concomitant]
  2. CARBASALAATCALCIUM [Concomitant]
  3. NIFEDIPINE [Concomitant]
  4. ZOLPIDEM [Concomitant]
  5. HYDROXYCHLOROQUINE SULFATE [Suspect]
     Dosage: 400 MG; QD
  6. METOPROLOL TARTRATE [Concomitant]

REACTIONS (7)
  - LOSS OF CONSCIOUSNESS [None]
  - HYPOGLYCAEMIA [None]
  - COMA [None]
  - SYNCOPE [None]
  - CONFUSIONAL STATE [None]
  - FEAR [None]
  - WEIGHT DECREASED [None]
